FAERS Safety Report 7970988 (Version 2)
Quarter: 2013Q2

REPORT INFORMATION
  Report Type: Spontaneous
  Country: US (occurrence: US)
  Receive Date: 20110602
  Receipt Date: 20130503
  Transmission Date: 20140414
  Serious: No
  Sender: FDA-Public Use
  Company Number: US-PFIZER INC-2011115196

PATIENT
  Age: 40 Year
  Sex: Male
  Weight: 90.7 kg

DRUGS (9)
  1. SOMAVERT [Suspect]
     Indication: ACROMEGALY
     Dosage: UNK
  2. SYNTHROID [Concomitant]
     Indication: HYPERTHYROIDISM
     Dosage: 137 UG, 1X/DAY
     Route: 048
  3. CORTEF [Concomitant]
     Dosage: 30 MG, 1X/DAY
     Route: 048
  4. TESTIM GEL [Concomitant]
     Dosage: 10 G, 1X/DAY
     Route: 061
  5. LEXAPRO [Concomitant]
     Dosage: 5 MG, 1X/DAY
     Route: 048
  6. VITAMIN D [Concomitant]
     Dosage: 50000 IU, 1X/DAY FOR 2 WEEKS, THEN ONE WEEKLY FOR THE REMINDER OF 6 MONTHS
  7. IRON [Concomitant]
     Dosage: 325 MG, AS NEEDED, 2 TABLETS WEEKLY
     Route: 048
  8. AXIRON [Concomitant]
     Dosage: 60 MG, 1X/DAY
  9. CORTISONE [Concomitant]
     Dosage: 25 MG, 1X/DAY

REACTIONS (1)
  - Fatigue [Unknown]
